FAERS Safety Report 5164405-6 (Version None)
Quarter: 2006Q4

REPORT INFORMATION
  Report Type: 
  Country: None (occurrence: None)
  Receive Date: 20061205
  Receipt Date: 20061124
  Transmission Date: 20070319
  Serious: Yes (Disabling)
  Sender: FDA-Public Use
  Company Number: PT-JNJFOC-20061105749

PATIENT
  Sex: Female

DRUGS (3)
  1. REMICADE [Suspect]
     Indication: PSORIASIS
     Dosage: TOTAL OF TWO DAYS
     Route: 042
  2. METHOTREXATE [Concomitant]
     Route: 065
  3. CORTICOIDS [Concomitant]
     Route: 065

REACTIONS (1)
  - ARTHROPATHY [None]
